FAERS Safety Report 9711433 (Version 1)
Quarter: 2013Q4

REPORT INFORMATION
  Report Type: Spontaneous
  Country: US (occurrence: US)
  Receive Date: 20131126
  Receipt Date: 20131126
  Transmission Date: 20140711
  Serious: No
  Sender: FDA-Public Use
  Company Number: US-BRISTOL-MYERS SQUIBB COMPANY-19399088

PATIENT
  Sex: Female
  Weight: 136.05 kg

DRUGS (3)
  1. BYETTA [Suspect]
     Indication: TYPE 2 DIABETES MELLITUS
     Route: 058
     Dates: start: 20130909
  2. CRESTOR [Concomitant]
  3. HYDROCHLOROTHIAZIDE [Concomitant]

REACTIONS (5)
  - Diarrhoea [Unknown]
  - Nausea [Recovered/Resolved]
  - Decreased appetite [Unknown]
  - Injection site rash [Unknown]
  - Drug dose omission [Unknown]
